FAERS Safety Report 5434309-X (Version None)
Quarter: 2007Q3

REPORT INFORMATION
  Report Type: 
  Country: None (occurrence: None)
  Receive Date: 20070829
  Receipt Date: 20070814
  Transmission Date: 20080115
  Serious: Yes (Other)
  Sender: FDA-Public Use
  Company Number: S07-IRL-03604-01

PATIENT
  Sex: Female

DRUGS (1)
  1. EBIXA (MEMANTINE HYDROCHLORIDE) [Suspect]

REACTIONS (3)
  - CONDITION AGGRAVATED [None]
  - CONVULSION [None]
  - DEMENTIA [None]
